FAERS Safety Report 15022633 (Version 1)
Quarter: 2018Q2

REPORT INFORMATION
  Report Type: Spontaneous
  Country: US (occurrence: US)
  Receive Date: 20180618
  Receipt Date: 20180618
  Transmission Date: 20180711
  Serious: No
  Sender: FDA-Public Use
  Company Number: US-BAYER-2018-107246

PATIENT
  Sex: Male

DRUGS (1)
  1. CLARITIN [Suspect]
     Active Substance: LORATADINE
     Dosage: 2 DF, UNK
     Route: 048
     Dates: start: 20180604

REACTIONS (2)
  - Incorrect dose administered [Unknown]
  - Product packaging issue [None]

NARRATIVE: CASE EVENT DATE: 20180604
